FAERS Safety Report 6335567-X (Version None)
Quarter: 2009Q3

REPORT INFORMATION
  Report Type: 
  Country: None (occurrence: None)
  Receive Date: 20090827
  Receipt Date: 20090608
  Transmission Date: 20100115
  Serious: Yes (Other)
  Sender: FDA-Public Use
  Company Number: GXKR2009AT06705

PATIENT
  Age: 59 Year
  Sex: Male
  Weight: 86 kg

DRUGS (3)
  1. CLAVAMOX (NGX) (AMOXICILLIN, CLAVULANATE) FILM-COATED TABLET, 1G [Suspect]
     Indication: ACUTE TONSILLITIS
     Dosage: 1DF, ONCE/SINGLE, ORAL
     Route: 048
     Dates: start: 20090224, end: 20090224
  2. RAMIPRIL [Concomitant]
  3. ANTIOCOAGULANTS (ANTICOAGULANTS) [Concomitant]

REACTIONS (5)
  - HYPOTENSION [None]
  - LOSS OF CONSCIOUSNESS [None]
  - NAUSEA [None]
  - VERTIGO [None]
  - VOMITING [None]
